FAERS Safety Report 24847215 (Version 6)
Quarter: 2025Q4

REPORT INFORMATION
  Report Type: Spontaneous
  Country: US (occurrence: US)
  Receive Date: 20250116
  Receipt Date: 20251203
  Transmission Date: 20260117
  Serious: Yes (Other)
  Sender: BIOGEN
  Company Number: US-BIOGEN-2025BI01296815

PATIENT
  Age: 72 Year
  Sex: Female

DRUGS (4)
  1. TYSABRI [Suspect]
     Active Substance: NATALIZUMAB
     Indication: Multiple sclerosis
     Dates: start: 20091113, end: 20150129
  2. TYSABRI [Suspect]
     Active Substance: NATALIZUMAB
     Dates: start: 20150531, end: 20250113
  3. TYSABRI [Suspect]
     Active Substance: NATALIZUMAB
  4. TECFIDERA [Suspect]
     Active Substance: DIMETHYL FUMARATE
     Indication: Multiple sclerosis

REACTIONS (2)
  - Breast cancer female [Not Recovered/Not Resolved]
  - Cystitis [Unknown]
